FAERS Safety Report 23400738 (Version 1)
Quarter: 2024Q1

REPORT INFORMATION
  Report Type: Spontaneous
  Country: US (occurrence: US)
  Receive Date: 20240115
  Receipt Date: 20240115
  Transmission Date: 20240409
  Serious: No
  Sender: FDA-Public Use
  Company Number: US-ABBVIE-5583405

PATIENT

DRUGS (2)
  1. BOTOX [Suspect]
     Active Substance: ONABOTULINUMTOXINA
     Indication: Product used for unknown indication
     Dosage: TIME INTERVAL: AS NECESSARY
     Route: 065
  2. ELAVIL [Concomitant]
     Active Substance: AMITRIPTYLINE HYDROCHLORIDE
     Indication: Product used for unknown indication

REACTIONS (3)
  - Migraine [Unknown]
  - Anxiety [Unknown]
  - Drug ineffective [Unknown]
